FAERS Safety Report 12760217 (Version 1)
Quarter: 2016Q3

REPORT INFORMATION
  Report Type: Spontaneous
  Country: US (occurrence: US)
  Receive Date: 20160919
  Receipt Date: 20160919
  Transmission Date: 20161109
  Serious: Yes (Other)
  Sender: FDA-Public Use
  Company Number: US-BAYER-2016-180427

PATIENT
  Age: 52 Year
  Sex: Male

DRUGS (1)
  1. RID SHAMPOO [Suspect]
     Active Substance: PIPERONYL BUTOXIDE\PYRETHRIN I
     Indication: LICE INFESTATION
     Dosage: UNK
     Dates: start: 20160914, end: 20160914

REACTIONS (8)
  - Eye swelling [Unknown]
  - Visual impairment [Unknown]
  - Photophobia [Unknown]
  - Foreign body sensation in eyes [Unknown]
  - Dizziness [Unknown]
  - Eye disorder [Unknown]
  - Eye irritation [Unknown]
  - Accidental exposure to product [Unknown]

NARRATIVE: CASE EVENT DATE: 20160914
